FAERS Safety Report 15366599 (Version 1)
Quarter: 2018Q3

REPORT INFORMATION
  Report Type: Spontaneous
  Country: US (occurrence: US)
  Receive Date: 20180901
  Receipt Date: 20180901
  Transmission Date: 20181010
  Serious: No
  Sender: FDA-Public Use
  Company Number: None

PATIENT
  Age: 65 Year
  Sex: Female

DRUGS (1)
  1. REGIONAL ALLERGIES GREAT LAKES U.S (HOMEOPATHICS) [Suspect]
     Active Substance: HOMEOPATHICS
     Indication: MULTIPLE ALLERGIES
     Route: 048
     Dates: start: 20180501, end: 20180505

REACTIONS (3)
  - Facial nerve disorder [None]
  - Bone pain [None]
  - Facial pain [None]

NARRATIVE: CASE EVENT DATE: 20180503
